APPROVED DRUG PRODUCT: CIMETIDINE
Active Ingredient: CIMETIDINE
Strength: 200MG
Dosage Form/Route: TABLET;ORAL
Application: A074948 | Product #002
Applicant: APOTEX INC
Approved: Jul 26, 2002 | RLD: No | RS: No | Type: DISCN